FAERS Safety Report 16456280 (Version 1)
Quarter: 2019Q2

REPORT INFORMATION
  Report Type: Spontaneous
  Country: US (occurrence: US)
  Receive Date: 20190620
  Receipt Date: 20190620
  Transmission Date: 20190711
  Serious: Yes (Life-Threatening)
  Sender: FDA-Public Use
  Company Number: US-TEVA-2019-US-1064276

PATIENT
  Age: 44 Year
  Sex: Female

DRUGS (6)
  1. EPINEPHRINE. [Suspect]
     Active Substance: EPINEPHRINE
     Dosage: MAXIMUM DOSE
     Route: 065
  2. PHENYLEPHRINE [Suspect]
     Active Substance: PHENYLEPHRINE\PHENYLEPHRINE HYDROCHLORIDE
     Dosage: MAXIMUM DOSE
     Route: 065
  3. NORMAL SALINE [Suspect]
     Active Substance: SODIUM CHLORIDE
     Dosage: ADMINISTERED VIA A CONTAMINATED IMPROPER IV ACCESS CATHETER PLACED BY A MEDICALLY UNTRAINED PERSON
     Route: 065
  4. VASOPRESSIN. [Suspect]
     Active Substance: VASOPRESSIN
     Dosage: MAXIMUM DOSE
     Route: 065
  5. BICARBONATE [Suspect]
     Active Substance: SODIUM BICARBONATE
     Indication: ACIDOSIS
     Route: 050
  6. NOREPINEPHRINE. [Suspect]
     Active Substance: NOREPINEPHRINE
     Dosage: MAXIMUM DOSE
     Route: 065

REACTIONS (1)
  - Drug ineffective [Unknown]
